FAERS Safety Report 7321535-8 (Version None)
Quarter: 2011Q1

REPORT INFORMATION
  Report Type: 
  Country: None (occurrence: None)
  Receive Date: 20110228
  Receipt Date: 20100323
  Transmission Date: 20110831
  Serious: No
  Sender: FDA-Public Use
  Company Number: A0851610A

PATIENT
  Sex: Female

DRUGS (8)
  1. LEVOXYL [Concomitant]
  2. VALACYCLOVIR [Suspect]
     Indication: GENITAL HERPES
     Dosage: 500MG PER DAY
     Route: 048
     Dates: start: 20100201, end: 20100313
  3. LIPITOR [Concomitant]
  4. VALPROIC ACID [Concomitant]
  5. TRAMADOL HCL [Concomitant]
  6. TIZANIDINE HCL [Concomitant]
  7. MELOXICAM [Concomitant]
  8. DIOVAN HCT [Concomitant]

REACTIONS (5)
  - DRUG INEFFECTIVE [None]
  - DISCOMFORT [None]
  - GAIT DISTURBANCE [None]
  - PAIN [None]
  - SKIN ULCER [None]
